FAERS Safety Report 7242760-0 (Version None)
Quarter: 2011Q1

REPORT INFORMATION
  Report Type: 
  Country: None (occurrence: None)
  Receive Date: 20110114
  Receipt Date: 20110104
  Transmission Date: 20110831
  Serious: No
  Sender: FDA-Public Use
  Company Number: B0693224A

PATIENT

DRUGS (3)
  1. MELPHALAN INFUSION (MELPHALAN) (GENERIC) [Suspect]
     Indication: SOFT TISSUE NEOPLASM
     Dosage: PERCUTANEOUS
  2. PENTASTARCH [Concomitant]
  3. LOCAL ANESTHETIC [Concomitant]

REACTIONS (3)
  - AMPUTATION [None]
  - ANGIOPATHY [None]
  - TOXICITY TO VARIOUS AGENTS [None]
